FAERS Safety Report 25729652 (Version 2)
Quarter: 2025Q3

REPORT INFORMATION
  Report Type: Spontaneous
  Country: US (occurrence: US)
  Receive Date: 20250827
  Receipt Date: 20250901
  Transmission Date: 20251020
  Serious: Yes (Other)
  Sender: ABBVIE
  Company Number: US-ABBVIE-6434464

PATIENT
  Sex: Male

DRUGS (1)
  1. CREON [Suspect]
     Active Substance: PANCRELIPASE AMYLASE\PANCRELIPASE LIPASE\PANCRELIPASE PROTEASE
     Indication: Pancreatic failure
     Route: 048
     Dates: start: 202507

REACTIONS (5)
  - Chemotherapy [Unknown]
  - Product use complaint [Unknown]
  - Pancreatectomy [Unknown]
  - Retching [Unknown]
  - Taste disorder [Unknown]

NARRATIVE: CASE EVENT DATE: 20250101
